FAERS Safety Report 7437027-1 (Version None)
Quarter: 2011Q2

REPORT INFORMATION
  Report Type: 
  Country: None (occurrence: None)
  Receive Date: 20110426
  Receipt Date: 20110425
  Transmission Date: 20111010
  Serious: No
  Sender: FDA-Public Use
  Company Number: US-ROXANE LABORATORIES, INC.-2011-RO-00417RO

PATIENT
  Sex: Male
  Weight: 83 kg

DRUGS (14)
  1. GEMFIBROZIL [Concomitant]
     Indication: BLOOD CHOLESTEROL INCREASED
     Dosage: 1200 MG
  2. ONGLYZA [Concomitant]
     Indication: DIABETES MELLITUS
     Dosage: 5 MG
     Dates: start: 20100801, end: 20110217
  3. PERCOCET [Concomitant]
     Indication: NEUROPATHY PERIPHERAL
     Dosage: 40 MG
     Dates: start: 19910101
  4. PREDNISONE [Suspect]
     Indication: URTICARIA
     Dosage: 20 MG
     Dates: start: 20110218, end: 20110308
  5. LISINOPRIL [Concomitant]
     Indication: HYPERTENSION
     Dosage: 20 MG
     Dates: start: 20090101, end: 20110217
  6. GABAPENTIN [Concomitant]
     Indication: NEUROPATHY PERIPHERAL
     Dosage: 800 MG
     Dates: start: 20010101
  7. TAMSULOSIN HCL [Concomitant]
     Indication: PROSTATOMEGALY
     Dosage: 0.4 MG
     Dates: start: 20110101
  8. ZOLPIDEM [Concomitant]
     Indication: SLEEP DISORDER
     Dosage: 10 MG
     Dates: start: 19910101
  9. DIPYRIDAMOLE [Concomitant]
     Indication: ANTICOAGULANT THERAPY
     Dosage: 150 MG
     Dates: start: 20100901
  10. METFORMIN [Concomitant]
     Indication: DIABETES MELLITUS
     Dosage: 2000 MG
     Dates: end: 20060101
  11. METFORMIN [Concomitant]
     Dosage: 500 MG
     Dates: start: 20060101
  12. GLIMEPIRIDE [Concomitant]
     Indication: DIABETES MELLITUS
     Dosage: 8 MG
     Dates: start: 20050101
  13. VERAPAMIL EXTENDED-RELEASE [Concomitant]
     Indication: HYPERTENSION
     Dosage: 480 MG
  14. OMEPRAZOLE [Concomitant]
     Indication: GASTROOESOPHAGEAL REFLUX DISEASE
     Dosage: 20 MG

REACTIONS (1)
  - BLOOD GLUCOSE INCREASED [None]
